FAERS Safety Report 12472999 (Version 1)
Quarter: 2016Q2

REPORT INFORMATION
  Report Type: Spontaneous
  Country: IT (occurrence: IT)
  Receive Date: 20160616
  Receipt Date: 20160616
  Transmission Date: 20160815
  Serious: Yes (Other)
  Sender: FDA-Public Use
  Company Number: IT-PFM-IT-2016-1831

PATIENT
  Age: 30 Year
  Sex: Male

DRUGS (2)
  1. VINORELBINE INN [Suspect]
     Active Substance: VINORELBINE TARTRATE
     Indication: PANCREATIC CARCINOMA METASTATIC
     Dosage: 30 MG/M2, CYCLICAL (1/28)
     Route: 065
     Dates: start: 2013, end: 201310
  2. GEMCITABINE [Suspect]
     Active Substance: GEMCITABINE\GEMCITABINE HYDROCHLORIDE
     Indication: PANCREATIC CARCINOMA METASTATIC
     Dosage: 1000 MG/M2, CYCLICAL (1/28)
     Route: 065
     Dates: start: 2013, end: 201310

REACTIONS (9)
  - Gamma-glutamyltransferase increased [Unknown]
  - Blood alkaline phosphatase increased [Unknown]
  - Vomiting [Unknown]
  - Off label use [Unknown]
  - Weight decreased [Unknown]
  - Abdominal pain [Unknown]
  - Condition aggravated [Unknown]
  - Pyrexia [Unknown]
  - Pain [Unknown]
